FAERS Safety Report 8327529-8 (Version None)
Quarter: 2012Q2

REPORT INFORMATION
  Report Type: 
  Country: None (occurrence: None)
  Receive Date: 20120502
  Receipt Date: 20120423
  Transmission Date: 20120825
  Serious: Yes (Hospitalization)
  Sender: FDA-Public Use
  Company Number: US-BAYER-2012-018552

PATIENT
  Age: 32 Year
  Sex: Female
  Weight: 61.224 kg

DRUGS (5)
  1. VITAMIN D [Concomitant]
     Dosage: DAILY
  2. YASMIN [Suspect]
     Indication: CONTRACEPTION
     Dosage: UNK
     Dates: start: 20020101, end: 20060101
  3. NAPROXEN [Concomitant]
     Indication: HEADACHE
     Dosage: 2-3 TABLETS
  4. LOTEMAX [Concomitant]
     Dosage: 1 DROP RIGHT EYE FOUR TIMES DAILY FOR 1 TO 2 WEEKS, THEN DROP IN RIGHT EYE TWICE DAILY FOR 1.
     Dates: start: 20101228
  5. YAZ [Suspect]
     Indication: CONTRACEPTION
     Dosage: UNK
     Dates: start: 20060101, end: 20110101

REACTIONS (5)
  - ANXIETY [None]
  - HEADACHE [None]
  - BILIARY DYSKINESIA [None]
  - FATIGUE [None]
  - MOOD SWINGS [None]
